FAERS Safety Report 20857811 (Version 1)
Quarter: 2022Q2

REPORT INFORMATION
  Report Type: Spontaneous
  Country: CN (occurrence: None)
  Receive Date: 20220521
  Receipt Date: 20220521
  Transmission Date: 20220721
  Serious: Yes (Other)
  Sender: FDA-Public Use
  Company Number: CN-ROCHE-3099841

PATIENT
  Age: 81 Year
  Sex: Male

DRUGS (8)
  1. ATEZOLIZUMAB [Suspect]
     Active Substance: ATEZOLIZUMAB
     Indication: Small cell lung cancer
     Route: 065
     Dates: start: 20211004
  2. ATEZOLIZUMAB [Suspect]
     Active Substance: ATEZOLIZUMAB
     Route: 065
     Dates: start: 20211104
  3. ATEZOLIZUMAB [Suspect]
     Active Substance: ATEZOLIZUMAB
     Route: 065
     Dates: start: 20211207
  4. ATEZOLIZUMAB [Suspect]
     Active Substance: ATEZOLIZUMAB
     Route: 065
     Dates: start: 20220127
  5. ETOPOSIDE [Concomitant]
     Active Substance: ETOPOSIDE
     Indication: Small cell lung cancer
     Route: 065
     Dates: start: 20211004
  6. ETOPOSIDE [Concomitant]
     Active Substance: ETOPOSIDE
     Dates: start: 20211104
  7. ETOPOSIDE [Concomitant]
     Active Substance: ETOPOSIDE
     Dates: start: 20211207
  8. PREDNISONE [Concomitant]
     Active Substance: PREDNISONE
     Indication: Small cell lung cancer
     Dosage: 30MG GRADUALLY REDUCED TO DISCONTINUATION
     Route: 048
     Dates: start: 20211203

REACTIONS (2)
  - Immune-mediated hyperthyroidism [Unknown]
  - Respiratory failure [Unknown]
